FAERS Safety Report 8919239 (Version 1)
Quarter: 2012Q4

REPORT INFORMATION
  Report Type: 
  Country: US (occurrence: US)
  Receive Date: 20121121
  Receipt Date: 20121121
  Transmission Date: 20130627
  Serious: No
  Sender: FDA-Public Use
  Company Number: US-PFIZER INC-2012290823

PATIENT
  Age: 51 Year
  Sex: Female
  Weight: 110 kg

DRUGS (14)
  1. EFFEXOR [Suspect]
     Indication: DEPRESSION
     Dosage: 75 mg, 1x/day
  2. LIPITOR [Concomitant]
     Indication: HIGH CHOLESTEROL
     Dosage: 20 mg,daily
  3. LEVOTHYROXINE [Concomitant]
     Indication: THYROID DISORDER
     Dosage: 88 ug, daily
  4. LOTENSIN [Concomitant]
     Indication: BLOOD PRESSURE HIGH
     Dosage: 30 mg,daily
  5. GLYBURIDE [Concomitant]
     Indication: DIABETES
     Dosage: 5 mg,daily
  6. FLEXERIL [Concomitant]
     Indication: BACK PAIN
     Dosage: UNK, as needed (3 tablets at maximum in a year)
  7. FLEXERIL [Concomitant]
     Indication: LEG PAIN
  8. VITAMIN D [Concomitant]
     Dosage: UNK
  9. CALCIUM 600 + D3 [Concomitant]
     Dosage: UNK
  10. FISH OIL [Concomitant]
     Dosage: UNK
  11. BIOTIN [Concomitant]
     Indication: HAIR LOSS
     Dosage: 5000 ug,daily
  12. BIOTIN [Concomitant]
     Indication: SKIN DISORDER
  13. ASPIRIN [Concomitant]
     Dosage: 81 mg,daily
  14. METFORMIN [Concomitant]
     Indication: DIABETES
     Dosage: 2000 mg,daily
     Dates: start: 200308

REACTIONS (1)
  - Nausea [Recovered/Resolved]
